FAERS Safety Report 13642990 (Version 1)
Quarter: 2017Q2

REPORT INFORMATION
  Report Type: Spontaneous
  Country: DE (occurrence: DE)
  Receive Date: 20170612
  Receipt Date: 20170612
  Transmission Date: 20170830
  Serious: Yes (Hospitalization, Other)
  Sender: FDA-Public Use
  Company Number: DE-TEVA-774551GER

PATIENT
  Age: 36 Year
  Sex: Male

DRUGS (8)
  1. CLOZAPIN [Suspect]
     Active Substance: CLOZAPINE
     Route: 048
     Dates: start: 20160329, end: 20160405
  2. RISPERIDON [Concomitant]
     Active Substance: RISPERIDONE
     Route: 048
     Dates: start: 20160325
  3. CLOZAPIN [Suspect]
     Active Substance: CLOZAPINE
     Route: 048
     Dates: start: 20160326, end: 20160328
  4. ZYPREXA [Concomitant]
     Active Substance: OLANZAPINE
     Route: 048
     Dates: start: 2013, end: 20160322
  5. RISPERIDON [Concomitant]
     Active Substance: RISPERIDONE
     Route: 048
     Dates: start: 2013, end: 20160324
  6. CLOZAPIN [Suspect]
     Active Substance: CLOZAPINE
     Route: 048
     Dates: start: 20160325, end: 20160326
  7. ZYPREXA [Concomitant]
     Active Substance: OLANZAPINE
     Route: 048
     Dates: start: 20160323, end: 20160408
  8. CLOZAPIN [Suspect]
     Active Substance: CLOZAPINE
     Route: 048
     Dates: start: 20160323, end: 20160324

REACTIONS (2)
  - Myocarditis [Recovered/Resolved]
  - Pericarditis [Recovered/Resolved]

NARRATIVE: CASE EVENT DATE: 20160403
